FAERS Safety Report 8250514-1 (Version None)
Quarter: 2012Q2

REPORT INFORMATION
  Report Type: 
  Country: None (occurrence: None)
  Receive Date: 20120402
  Receipt Date: 20120402
  Transmission Date: 20120825
  Serious: No
  Sender: FDA-Public Use
  Company Number: None

PATIENT
  Sex: Female
  Weight: 68.038 kg

DRUGS (1)
  1. RIBAVIRIN [Suspect]
     Indication: HEPATITIS C
     Route: 058
     Dates: start: 19980101, end: 20000601

REACTIONS (18)
  - VISUAL IMPAIRMENT [None]
  - STOMATITIS [None]
  - ANXIETY [None]
  - LETHARGY [None]
  - SKIN DISORDER [None]
  - WEIGHT INCREASED [None]
  - HYPERTENSION [None]
  - MYALGIA [None]
  - PANIC ATTACK [None]
  - MEMORY IMPAIRMENT [None]
  - DEPRESSION [None]
  - IMPAIRED WORK ABILITY [None]
  - MENTAL IMPAIRMENT [None]
  - BLOOD CHOLESTEROL INCREASED [None]
  - COGNITIVE DISORDER [None]
  - DISTURBANCE IN ATTENTION [None]
  - SLEEP DISORDER [None]
  - FATIGUE [None]
